FAERS Safety Report 13686648 (Version 1)
Quarter: 2017Q2

REPORT INFORMATION
  Report Type: Spontaneous
  Country: US (occurrence: US)
  Receive Date: 20170623
  Receipt Date: 20170623
  Transmission Date: 20170830
  Serious: Yes (Other)
  Sender: FDA-Public Use
  Company Number: US-NAPPMUNDI-USA-2017-0139071

PATIENT
  Sex: Male

DRUGS (4)
  1. ABILIFY [Suspect]
     Active Substance: ARIPIPRAZOLE
     Indication: AFFECTIVE DISORDER
     Dosage: UNK
     Route: 048
  2. OXYCONTIN [Suspect]
     Active Substance: OXYCODONE HYDROCHLORIDE
     Indication: BACK DISORDER
     Dosage: 80 MG, UNK
     Route: 048
     Dates: start: 2016, end: 201705
  3. OXYMORPHONE [Suspect]
     Active Substance: OXYMORPHONE
     Indication: BACK DISORDER
     Dosage: 20 MG, UNK
     Route: 065
     Dates: start: 201705
  4. OXYCODONE HYDROCHLORIDE (SIMILAR TO NDA 22-272) [Suspect]
     Active Substance: OXYCODONE HYDROCHLORIDE
     Indication: BACK DISORDER
     Dosage: UNK (10-80 MG)
     Route: 048
     Dates: start: 2016, end: 201705

REACTIONS (8)
  - Anger [Unknown]
  - Drug hypersensitivity [Unknown]
  - Contusion [Unknown]
  - Haemorrhage [Unknown]
  - Rash [Unknown]
  - Pruritus [Unknown]
  - Intervertebral disc disorder [Unknown]
  - Insomnia [Unknown]
